FAERS Safety Report 17787800 (Version 1)
Quarter: 2020Q2

REPORT INFORMATION
  Report Type: Spontaneous
  Country: US (occurrence: US)
  Receive Date: 20200514
  Receipt Date: 20200514
  Transmission Date: 20200714
  Serious: No
  Sender: FDA-Public Use
  Company Number: US-PERRIGO-19US014597

PATIENT
  Age: 81 Year
  Sex: Female
  Weight: 48.99 kg

DRUGS (3)
  1. TRIAMCINOLONE ACETONIDE. [Suspect]
     Active Substance: TRIAMCINOLONE ACETONIDE
     Indication: URTICARIA
     Dosage: 1 APPLICATION, UNKNOWN
     Route: 061
     Dates: start: 20191119
  2. BENADRYL [Concomitant]
     Active Substance: DIPHENHYDRAMINE HYDROCHLORIDE
     Indication: URTICARIA
     Dosage: 25 MG, PRN
     Route: 048
     Dates: start: 20191121
  3. CORTISONE [Concomitant]
     Active Substance: CORTISONE
     Indication: URTICARIA
     Dosage: UNK
     Route: 030
     Dates: start: 20191121, end: 20191121

REACTIONS (1)
  - Drug ineffective [Unknown]

NARRATIVE: CASE EVENT DATE: 20191119
